FAERS Safety Report 4967326-4 (Version None)
Quarter: 2006Q2

REPORT INFORMATION
  Report Type: 
  Country: None (occurrence: None)
  Receive Date: 20060410
  Receipt Date: 20060315
  Transmission Date: 20061013
  Serious: Yes (Hospitalization)
  Sender: FDA-Public Use
  Company Number: PHBS2006JP04162

PATIENT
  Age: 30 Year
  Sex: Female
  Weight: 50 kg

DRUGS (5)
  1. PREDNISOLONE [Suspect]
     Indication: LUPUS NEPHRITIS
     Dosage: 5 MG/D
     Route: 048
     Dates: start: 20040421, end: 20060201
  2. PREDNISOLONE [Suspect]
     Dosage: 10 MG/D
     Route: 048
     Dates: start: 20060202
  3. NEORAL [Suspect]
     Indication: LUPUS NEPHRITIS
     Dosage: 100 MG/D
     Route: 048
     Dates: start: 20040421, end: 20050309
  4. NEORAL [Suspect]
     Dosage: 75 MG/D
     Route: 048
     Dates: start: 20050310, end: 20050803
  5. NEORAL [Suspect]
     Dosage: 50 MG/D
     Route: 048
     Dates: start: 20050804, end: 20060201

REACTIONS (4)
  - AMNIORRHEXIS [None]
  - CAESAREAN SECTION [None]
  - DRUG EXPOSURE DURING PREGNANCY [None]
  - NORMAL NEWBORN [None]
